FAERS Safety Report 6840153-9 (Version None)
Quarter: 2010Q3

REPORT INFORMATION
  Report Type: 
  Country: None (occurrence: None)
  Receive Date: 20100714
  Receipt Date: 20100708
  Transmission Date: 20110219
  Serious: Yes (Death, Life-Threatening)
  Sender: FDA-Public Use
  Company Number: JP-JNJFOC-20100702868

PATIENT
  Age: 14 Month
  Sex: Female

DRUGS (1)
  1. LEUSTATIN [Suspect]
     Indication: LANGERHANS' CELL HISTIOCYTOSIS
     Route: 042

REACTIONS (2)
  - LANGERHANS' CELL HISTIOCYTOSIS [None]
  - NEUTROPENIA [None]
